FAERS Safety Report 11362822 (Version 1)
Quarter: 2015Q3

REPORT INFORMATION
  Report Type: Spontaneous
  Country: PT (occurrence: PT)
  Receive Date: 20150810
  Receipt Date: 20150810
  Transmission Date: 20151125
  Serious: Yes (Hospitalization, Other)
  Sender: FDA-Public Use
  Company Number: PT-B.I. PHARMACEUTICALS,INC./RIDGEFIELD-2015-BI-43328GD

PATIENT
  Age: 81 Year
  Sex: Female

DRUGS (1)
  1. PRADAXA [Suspect]
     Active Substance: DABIGATRAN ETEXILATE MESYLATE
     Indication: ATRIAL FIBRILLATION
     Dosage: 150 MG
     Route: 065

REACTIONS (7)
  - Coagulation test abnormal [Unknown]
  - Haemodynamic instability [Unknown]
  - Infectious colitis [Unknown]
  - Overdose [Recovered/Resolved]
  - Diarrhoea [Unknown]
  - Oliguria [Unknown]
  - Colitis ischaemic [Unknown]
